FAERS Safety Report 14940305 (Version 2)
Quarter: 2018Q4

REPORT INFORMATION
  Report Type: Report from Study
  Country: CA (occurrence: CA)
  Receive Date: 20180525
  Receipt Date: 20181220
  Transmission Date: 20190204
  Serious: Yes (Other)
  Sender: FDA-Public Use
  Company Number: CA-SA-2017SA189857

PATIENT
  Age: 22 Year
  Sex: Female

DRUGS (13)
  1. ALEMTUZUMAB [Suspect]
     Active Substance: ALEMTUZUMAB
     Indication: RELAPSING-REMITTING MULTIPLE SCLEROSIS
     Dosage: 12 MG,QD
     Route: 041
     Dates: start: 20170925, end: 20170929
  2. GRAVOL [Concomitant]
     Active Substance: DIMENHYDRINATE
     Indication: PREMEDICATION
     Dosage: 50 MG,PRN
     Route: 048
     Dates: start: 20170925
  3. ACICLOVIR [Concomitant]
     Active Substance: ACYCLOVIR
     Indication: PREMEDICATION
     Dosage: 200 MG,BID
     Route: 048
     Dates: start: 20170925
  4. TYLENOL [Concomitant]
     Active Substance: ACETAMINOPHEN
     Indication: PREMEDICATION
     Dosage: 325-1000MG,PRN
     Route: 048
     Dates: start: 20170925
  5. SYMBICORT [Concomitant]
     Active Substance: BUDESONIDE\FORMOTEROL FUMARATE DIHYDRATE
     Indication: HYPERSENSITIVITY
     Dosage: UNK UNK,QD
     Route: 055
  6. CYANOCOBALAMIN. [Concomitant]
     Active Substance: CYANOCOBALAMIN
     Indication: SUPPLEMENTATION THERAPY
     Dosage: UNK UNK,QD
     Route: 048
  7. VITAMIN D [ERGOCALCIFEROL] [Concomitant]
     Indication: SUPPLEMENTATION THERAPY
     Dosage: UNK UNK,QD
     Route: 048
  8. METHYLPREDNISOLONE. [Concomitant]
     Active Substance: METHYLPREDNISOLONE
     Indication: PREMEDICATION
     Dosage: 1 G,UNK
     Route: 042
     Dates: start: 20170925, end: 20170929
  9. ALESSE 28 [Concomitant]
     Active Substance: ETHINYL ESTRADIOL\LEVONORGESTREL
     Indication: ORAL CONTRACEPTION
     Dosage: UNK UNK,QD
     Route: 048
  10. LORAZEPAM. [Concomitant]
     Active Substance: LORAZEPAM
     Indication: SLEEP DISORDER THERAPY
     Dosage: UNK UNK,QD
     Route: 048
  11. BENADRYL [Concomitant]
     Active Substance: DIPHENHYDRAMINE HYDROCHLORIDE
     Indication: PREMEDICATION
     Dosage: 50 MG,PRN
     Route: 048
     Dates: start: 20170925
  12. MAGNESIUM [Concomitant]
     Active Substance: MAGNESIUM
     Indication: SUPPLEMENTATION THERAPY
     Dosage: UNK UNK,QD
     Route: 048
  13. CIMETIDINE [Concomitant]
     Active Substance: CIMETIDINE
     Indication: PREMEDICATION
     Dosage: 200 MG,UNK
     Route: 048
     Dates: start: 20170925, end: 20170929

REACTIONS (38)
  - Vertigo [Not Recovered/Not Resolved]
  - Urine abnormality [Not Recovered/Not Resolved]
  - Hypertension [Recovered/Resolved]
  - Tachycardia [Recovered/Resolved]
  - Vision blurred [Recovering/Resolving]
  - Pain [Recovered/Resolved]
  - Back pain [Recovered/Resolved]
  - Red blood cell count increased [Not Recovered/Not Resolved]
  - Protein urine present [Recovered/Resolved]
  - Rash generalised [Not Recovered/Not Resolved]
  - Fatigue [Not Recovered/Not Resolved]
  - Nausea [Not Recovered/Not Resolved]
  - Nitrite urine present [Recovered/Resolved]
  - Eye disorder [Not Recovered/Not Resolved]
  - Eosinophil count increased [Recovered/Resolved]
  - Discomfort [Recovered/Resolved]
  - Urine leukocyte esterase positive [Not Recovered/Not Resolved]
  - Headache [Recovered/Resolved]
  - Dizziness [Not Recovered/Not Resolved]
  - Mean cell haemoglobin decreased [Recovered/Resolved]
  - Chills [Recovered/Resolved]
  - Feeding disorder [Not Recovered/Not Resolved]
  - Blood urine present [Recovered/Resolved]
  - Kidney infection [Recovered/Resolved]
  - Urine ketone body present [Not Recovered/Not Resolved]
  - Lymphocyte count decreased [Recovered/Resolved]
  - Headache [Not Recovered/Not Resolved]
  - Rash macular [Recovered/Resolved]
  - Blood pressure decreased [Recovered/Resolved]
  - Malaise [Not Recovered/Not Resolved]
  - Asthenia [Recovered/Resolved]
  - Nausea [Recovered/Resolved]
  - Ear discomfort [Recovered/Resolved]
  - Migraine [Not Recovered/Not Resolved]
  - Anxiety [Recovered/Resolved]
  - Escherichia test positive [Recovered/Resolved]
  - Lactose intolerance [Not Recovered/Not Resolved]
  - Abdominal pain upper [Recovered/Resolved]

NARRATIVE: CASE EVENT DATE: 20170925
